FAERS Safety Report 6454569-6 (Version None)
Quarter: 2009Q4

REPORT INFORMATION
  Report Type: 
  Country: None (occurrence: None)
  Receive Date: 20091118
  Receipt Date: 20091102
  Transmission Date: 20100525
  Serious: Yes (Hospitalization)
  Sender: FDA-Public Use
  Company Number: US-1170440

PATIENT
  Age: 93 Year
  Sex: Female

DRUGS (3)
  1. TOBRADEX [Suspect]
     Indication: EYE INFECTION
     Dosage: (1/2 INCH APPLIED TO AFFECTED EYE BID OPHTHALMIC)
     Route: 047
     Dates: start: 20090401, end: 20090401
  2. TOBRADEX [Suspect]
     Indication: SUPERFICIAL INJURY OF EYE
     Dosage: (1/2 INCH APPLIED TO AFFECTED EYE BID OPHTHALMIC)
     Route: 047
     Dates: start: 20090401, end: 20090401
  3. PREVACID [Concomitant]

REACTIONS (11)
  - ASPIRATION [None]
  - COUGH [None]
  - DECREASED ACTIVITY [None]
  - DEHYDRATION [None]
  - DYSPHAGIA [None]
  - FLUID INTAKE REDUCED [None]
  - INFECTION SUSCEPTIBILITY INCREASED [None]
  - PEMPHIGOID [None]
  - RED BLOOD CELL COUNT INCREASED [None]
  - SKIN DISCOLOURATION [None]
  - SLEEP DISORDER [None]
